FAERS Safety Report 4598853-X (Version None)
Quarter: 2005Q1

REPORT INFORMATION
  Report Type: 
  Country: None (occurrence: None)
  Receive Date: 20050302
  Receipt Date: 20050302
  Transmission Date: 20050727
  Serious: Yes (Life-Threatening, Hospitalization)
  Sender: FDA-Public Use
  Company Number: None

PATIENT
  Age: 81 Year
  Sex: Female

DRUGS (9)
  1. METRONIDAZOLE [Suspect]
     Indication: DIARRHOEA
     Dosage: 500 MG TID ORAL
     Route: 048
     Dates: start: 20031217, end: 20031218
  2. CARVEDILOL [Concomitant]
  3. DIGOXIN [Concomitant]
  4. ASPIRIN [Concomitant]
  5. SIMVASTATIN [Concomitant]
  6. CANDESARTAN [Concomitant]
  7. CLONIDINE [Concomitant]
  8. ZOLPIDIEM [Concomitant]
  9. HYDROCODONE BITARTRATE + ACETAMINOPHEN [Concomitant]

REACTIONS (2)
  - DEHYDRATION [None]
  - SWOLLEN TONGUE [None]
